FAERS Safety Report 6983630-2 (Version None)
Quarter: 2010Q3

REPORT INFORMATION
  Report Type: 
  Country: None (occurrence: None)
  Receive Date: 20100914
  Receipt Date: 20081120
  Transmission Date: 20110219
  Serious: No
  Sender: FDA-Public Use
  Company Number: US-WYE-H06919708

PATIENT
  Age: 20 Year
  Sex: Female
  Weight: 81.72 kg

DRUGS (1)
  1. ADVIL LIQUI-GELS [Suspect]
     Indication: ABDOMINAL PAIN UPPER
     Dosage: 3 OR 6 LIQUI-GELS X 1
     Route: 048
     Dates: start: 20081120, end: 20081120

REACTIONS (2)
  - INCORRECT DOSE ADMINISTERED [None]
  - NAUSEA [None]
